FAERS Safety Report 10022001 (Version 1)
Quarter: 2014Q1

REPORT INFORMATION
  Report Type: Spontaneous
  Country: US (occurrence: None)
  Receive Date: 20140318
  Receipt Date: 20140318
  Transmission Date: 20141002
  Serious: Yes (Other)
  Sender: FDA-Public Use
  Company Number: None

PATIENT
  Age: 52 Year
  Sex: Female

DRUGS (1)
  1. LIP BALM [Suspect]
     Indication: LIP DRY
     Dates: start: 20140314, end: 20140315

REACTIONS (3)
  - Lip swelling [None]
  - Urticaria [None]
  - Pruritus [None]
